FAERS Safety Report 10146170 (Version 1)
Quarter: 2014Q2

REPORT INFORMATION
  Report Type: Spontaneous
  Country: US (occurrence: None)
  Receive Date: 20140430
  Receipt Date: 20140430
  Transmission Date: 20141212
  Serious: Yes (Hospitalization)
  Sender: FDA-Public Use
  Company Number: None

PATIENT
  Age: 78 Year
  Sex: Male

DRUGS (8)
  1. ZYTIGA [Suspect]
     Indication: PROSTATE CANCER
     Dosage: 4 PILLS QD ORAL
     Route: 048
     Dates: start: 20130918
  2. PREDNISONE [Concomitant]
  3. BICALUTAMIDE [Concomitant]
  4. FISH OIL [Concomitant]
  5. GLIPIZIDE [Concomitant]
  6. LANTUS [Concomitant]
  7. LOSARTAN [Concomitant]
  8. MULTIVITAMIN [Concomitant]

REACTIONS (1)
  - Infection [None]
